FAERS Safety Report 4932061-5 (Version None)
Quarter: 2006Q1

REPORT INFORMATION
  Report Type: 
  Country: None (occurrence: None)
  Receive Date: 20060303
  Receipt Date: 20060217
  Transmission Date: 20060701
  Serious: Yes (Hospitalization)
  Sender: FDA-Public Use
  Company Number: FRWYE404117FEB06

PATIENT
  Age: 67 Year
  Sex: Female

DRUGS (4)
  1. ENBREL [Suspect]
     Indication: PSORIATIC ARTHROPATHY
     Route: 058
     Dates: start: 20030701, end: 20040901
  2. ENBREL [Suspect]
     Route: 058
     Dates: start: 20050701, end: 20050904
  3. CORTANCYL [Concomitant]
     Dosage: 7.5 MG TOTAL DAILY
     Route: 048
  4. CEBUTID [Concomitant]
     Dosage: 300 MG TOTAL DAILY
     Route: 048

REACTIONS (3)
  - ANIMAL BITE [None]
  - ARTHRITIS BACTERIAL [None]
  - SEPSIS PASTEURELLA [None]
